FAERS Safety Report 15440002 (Version 2)
Quarter: 2018Q4

REPORT INFORMATION
  Report Type: Spontaneous
  Country: BR (occurrence: BR)
  Receive Date: 20180928
  Receipt Date: 20181115
  Transmission Date: 20190204
  Serious: Yes (Other)
  Sender: FDA-Public Use
  Company Number: BR-AMGEN-BRASP2018133452

PATIENT
  Age: 54 Year
  Sex: Female

DRUGS (2)
  1. ENBREL [Suspect]
     Active Substance: ETANERCEPT
     Indication: RHEUMATOID ARTHRITIS
     Dosage: 50 MG, WEEKLY
     Route: 065
  2. ENBREL [Suspect]
     Active Substance: ETANERCEPT
     Dosage: 50 MG, EVERY 14 DAYS
     Route: 065
     Dates: end: 201807

REACTIONS (5)
  - Drug effect incomplete [Unknown]
  - Accident at home [Unknown]
  - Tendon rupture [Unknown]
  - Osteoporosis [Unknown]
  - Product use issue [Unknown]

NARRATIVE: CASE EVENT DATE: 2018
